FAERS Safety Report 4347486-9 (Version None)
Quarter: 2004Q2

REPORT INFORMATION
  Report Type: 
  Country: None (occurrence: None)
  Receive Date: 20040422
  Receipt Date: 20040414
  Transmission Date: 20050107
  Serious: Yes (Death)
  Sender: FDA-Public Use
  Company Number: USA-2004-0014543

PATIENT
  Sex: Male

DRUGS (8)
  1. OXYCODONE HCL [Suspect]
  2. ETHANOL (ETHANOL) [Suspect]
  3. DIAZEPAM [Suspect]
  4. TEMAZEPAM [Suspect]
  5. GABAPENTIN [Suspect]
  6. CITALOPRAM [Suspect]
  7. OLANZAPINE [Suspect]
  8. OXAZEPAM [Suspect]

REACTIONS (5)
  - AORTIC ATHEROSCLEROSIS [None]
  - HEPATIC CIRRHOSIS [None]
  - HEPATITIS C [None]
  - MULTIPLE DRUG OVERDOSE [None]
  - PULMONARY OEDEMA [None]
